FAERS Safety Report 5811110-6 (Version None)
Quarter: 2008Q3

REPORT INFORMATION
  Report Type: 
  Country: None (occurrence: None)
  Receive Date: 20080716
  Receipt Date: 20080707
  Transmission Date: 20090109
  Serious: Yes (Hospitalization)
  Sender: FDA-Public Use
  Company Number: US-JNJFOC-20080601576

PATIENT
  Sex: Male
  Weight: 83.01 kg

DRUGS (10)
  1. REMICADE [Suspect]
     Route: 042
  2. REMICADE [Suspect]
     Route: 042
  3. REMICADE [Suspect]
     Route: 042
  4. REMICADE [Suspect]
     Indication: CROHN'S DISEASE
     Route: 042
  5. MESALAMINE [Concomitant]
     Indication: CROHN'S DISEASE
  6. OMEPRAZOLE [Concomitant]
  7. DIOVAN [Concomitant]
  8. AMLODIPINE [Concomitant]
  9. AZATHIOPRINE [Concomitant]
  10. GLYBURIDE [Concomitant]

REACTIONS (2)
  - LUNG DISORDER [None]
  - THROMBOSIS [None]
